FAERS Safety Report 5763021-2 (Version None)
Quarter: 2008Q2

REPORT INFORMATION
  Report Type: 
  Country: None (occurrence: None)
  Receive Date: 20080609
  Receipt Date: 20080527
  Transmission Date: 20081010
  Serious: Yes (Hospitalization)
  Sender: FDA-Public Use
  Company Number: CA-ELI_LILLY_AND_COMPANY-CA200805005957

PATIENT
  Age: 84 Year
  Sex: Male

DRUGS (12)
  1. FORTEO [Suspect]
     Indication: OSTEOPOROSIS
     Dosage: 20 UG, DAILY (1/D)
     Route: 058
     Dates: start: 20080130, end: 20080301
  2. FORTEO [Suspect]
     Dosage: 20 UG, DAILY (1/D)
     Route: 058
     Dates: start: 20080318
  3. RABEPRAZOLE SODIUM [Concomitant]
     Dosage: 20 MG, UNK
  4. FUROSEMIDE [Concomitant]
     Dosage: 20 MG, UNK
  5. ARICEPT [Concomitant]
  6. DILTIAZEM [Concomitant]
     Dosage: 240 MG, UNK
  7. PLAVIX [Concomitant]
     Dosage: 75 MG, UNK
  8. LIPITOR [Concomitant]
     Dosage: 40 MG, UNK
  9. AMIDARONE [Concomitant]
     Dosage: 200 MG, UNK
  10. SPIRIVA [Concomitant]
     Dosage: 18 MG, UNK
  11. ADVAIR DISKUS 100/50 [Concomitant]
     Dosage: 250 MG, UNK
  12. NITRO-DUR [Concomitant]
     Dosage: 0.4 MG, UNK
     Route: 062

REACTIONS (1)
  - CHEST PAIN [None]
